FAERS Safety Report 8163761 (Version 2)
Quarter: 2016Q4

REPORT INFORMATION
  Report Type: Spontaneous
  Country: GB (occurrence: GB)
  Receive Date: 20110930
  Receipt Date: 20161224
  Transmission Date: 20170207
  Serious: Yes (Other)
  Sender: FDA-Public Use
  Company Number: GB-JNJFOC-20110910367

PATIENT
  Sex: Female

DRUGS (1)
  1. NON DROWSY SUDAFED DECONGESTANT NASAL SPRAY [Suspect]
     Active Substance: XYLOMETAZOLINE HYDROCHLORIDE
     Indication: NASAL CONGESTION
     Dosage: UP TO FIVE TIMES A DAY
     Route: 065

REACTIONS (6)
  - Nasal congestion [Unknown]
  - Dependence [Unknown]
  - Overdose [Unknown]
  - Pruritus [Unknown]
  - Intentional product use issue [Unknown]
  - Nasal ulcer [Unknown]
